FAERS Safety Report 11045230 (Version 3)
Quarter: 2015Q2

REPORT INFORMATION
  Report Type: Spontaneous
  Country: IT (occurrence: IT)
  Receive Date: 20150417
  Receipt Date: 20150428
  Transmission Date: 20150821
  Serious: Yes (Death, Disabling)
  Sender: FDA-Public Use
  Company Number: PHHY2015IT044996

PATIENT
  Age: 61 Year
  Sex: Female

DRUGS (3)
  1. ZOMETA [Suspect]
     Active Substance: ZOLEDRONIC ACID
     Indication: METASTASES TO BONE
     Dosage: 4 MG PLUS 5 ML SOLUTION, CYCLIC
     Route: 042
     Dates: start: 20110901, end: 20130101
  2. PACLITAXEL STRAGEN [Concomitant]
     Indication: BREAST CANCER
     Dosage: 175 UG, UNK
     Route: 042
  3. DELTACORTENE [Concomitant]
     Active Substance: PREDNISONE
     Indication: BREAST CANCER
     Dosage: 25 MG, UNK
     Route: 048

REACTIONS (1)
  - Osteonecrosis of jaw [Fatal]

NARRATIVE: CASE EVENT DATE: 20130201
